FAERS Safety Report 8772830 (Version 2)
Quarter: 2013Q4

REPORT INFORMATION
  Report Type: Spontaneous
  Country: GB (occurrence: GB)
  Receive Date: 20120907
  Receipt Date: 20131108
  Transmission Date: 20140711
  Serious: Yes (Disabling)
  Sender: FDA-Public Use
  Company Number: GB-009507513-1203GBR00039

PATIENT
  Sex: Female

DRUGS (21)
  1. ZOCOR [Suspect]
     Dosage: 20 MG, UNK
     Route: 048
     Dates: start: 200205, end: 2007
  2. ZOCOR [Suspect]
     Dosage: 40 MG, UNK
     Route: 048
     Dates: start: 2007, end: 201107
  3. BRUFEN [Concomitant]
     Indication: MUSCLE SPASMS
     Dates: start: 2002, end: 200203
  4. OLMESARTAN MEDOXOMIL [Concomitant]
     Indication: HYPERTENSION
     Dosage: 10 MG, BID
     Dates: start: 2006, end: 20120415
  5. OLMESARTAN MEDOXOMIL [Concomitant]
     Dosage: 20 MG, UNK
     Dates: start: 201108
  6. OLMESARTAN MEDOXOMIL [Concomitant]
     Dosage: 10 MG, UNK
     Dates: start: 20120415
  7. VALSARTAN [Concomitant]
  8. AMLODIPINE [Concomitant]
     Dosage: 5 MG, QD
     Dates: start: 2006
  9. PRINIVIL [Concomitant]
     Dosage: 10 MG, QD
     Route: 048
     Dates: start: 2002
  10. BENDROFLUMETHIAZIDE [Concomitant]
     Dosage: 2.5 MG, QD
     Dates: start: 200201
  11. KEPRA [Concomitant]
     Dosage: 500 MG, QD
     Dates: start: 2006
  12. KEPRA [Concomitant]
     Dosage: 250 MG, QD
     Dates: start: 201108
  13. FLUOXETINE [Concomitant]
     Dosage: 20 MG, UNK
     Dates: start: 200201
  14. ELAVIL (MADE BY MERCK, MARKETED BY ZENECA) [Concomitant]
     Dosage: 25 MG, UNK
     Dates: start: 2002
  15. PAROXETINE [Concomitant]
     Dates: start: 200312
  16. MK-9359 [Concomitant]
     Dosage: 100 MG, UNK
     Dates: start: 2002
  17. MK-9359 [Concomitant]
     Dates: start: 2003
  18. MK-9359 [Concomitant]
     Dosage: 100 MG, UNK
     Dates: start: 2006
  19. MK-9359 [Concomitant]
     Dosage: 50 MG, UNK
  20. CLONAZEPAM [Concomitant]
     Indication: MUSCLE SPASMS
     Dates: start: 2002, end: 2006
  21. DILTIAZEM HYDROCHLORIDE [Concomitant]
     Dates: start: 2002

REACTIONS (49)
  - Cardiac disorder [Recovered/Resolved]
  - Finger deformity [Recovered/Resolved]
  - Pain in extremity [Recovered/Resolved]
  - Pain in extremity [Recovered/Resolved]
  - Local swelling [Recovered/Resolved]
  - Muscle atrophy [Recovered/Resolved]
  - Muscular weakness [Recovered/Resolved]
  - Myalgia [Recovered/Resolved]
  - Arthralgia [Recovered/Resolved]
  - Joint swelling [Recovered/Resolved]
  - Abasia [Recovered/Resolved]
  - Liver tenderness [Recovered/Resolved]
  - Back pain [Recovered/Resolved]
  - Arthralgia [Recovered/Resolved]
  - Arthralgia [Recovered/Resolved]
  - Musculoskeletal pain [Recovered/Resolved]
  - Neck pain [Recovered/Resolved]
  - Palpitations [Recovered/Resolved]
  - Dyskinesia [Recovered/Resolved]
  - Disturbance in attention [Recovered/Resolved]
  - Performance status decreased [Recovered/Resolved]
  - Muscle spasms [Recovered/Resolved]
  - Arthralgia [Recovered/Resolved]
  - Dry mouth [Recovered/Resolved]
  - Pain [Recovered/Resolved]
  - Disturbance in attention [Recovered/Resolved]
  - Disturbance in attention [Recovered/Resolved]
  - Chest discomfort [Recovered/Resolved]
  - Cardiomegaly [Unknown]
  - Chest pain [Recovered/Resolved]
  - Dyspnoea [Recovered/Resolved]
  - Breath sounds abnormal [Recovered/Resolved]
  - Tachycardia [Recovered/Resolved]
  - Chest discomfort [Recovered/Resolved]
  - Dysphagia [Recovered/Resolved]
  - Paraesthesia [Recovered/Resolved]
  - Tinnitus [Recovered/Resolved]
  - Cardiac disorder [Unknown]
  - Pain [Recovered/Resolved]
  - Pyrexia [Recovered/Resolved]
  - Pigmentation disorder [Recovered/Resolved]
  - Faeces pale [Recovered/Resolved]
  - Arthralgia [Recovered/Resolved]
  - Back pain [Recovered/Resolved]
  - Blood pressure increased [Unknown]
  - Bone pain [Recovering/Resolving]
  - Muscular weakness [Recovering/Resolving]
  - Joint swelling [Recovering/Resolving]
  - Sleep disorder [Recovered/Resolved]
